FAERS Safety Report 7105039-3 (Version None)
Quarter: 2010Q4

REPORT INFORMATION
  Report Type: 
  Country: None (occurrence: None)
  Receive Date: 20101110
  Receipt Date: 20101101
  Transmission Date: 20110411
  Serious: Yes (Other)
  Sender: FDA-Public Use
  Company Number: 2010110011

PATIENT
  Age: 35 Year
  Sex: Male

DRUGS (1)
  1. FELBATOL [Suspect]
     Dosage: ORAL
     Route: 048
     Dates: start: 19950101

REACTIONS (1)
  - OSTEOPOROSIS [None]
